FAERS Safety Report 7258720-X (Version None)
Quarter: 2011Q1

REPORT INFORMATION
  Report Type: 
  Country: None (occurrence: None)
  Receive Date: 20110129
  Receipt Date: 20100517
  Transmission Date: 20110831
  Serious: No
  Sender: FDA-Public Use
  Company Number: US-ABBOTT-10P-163-0645516-00

PATIENT
  Sex: Female
  Weight: 65.83 kg

DRUGS (3)
  1. DIOVAN [Concomitant]
     Indication: HYPERTENSION
  2. HUMIRA [Suspect]
     Dates: start: 20100216
  3. HUMIRA [Suspect]
     Indication: RHEUMATOID ARTHRITIS
     Dates: start: 20050201, end: 20080101

REACTIONS (1)
  - DRUG EFFECT DECREASED [None]
